FAERS Safety Report 7477765-8 (Version None)
Quarter: 2011Q2

REPORT INFORMATION
  Report Type: 
  Country: None (occurrence: None)
  Receive Date: 20110513
  Receipt Date: 20110504
  Transmission Date: 20111010
  Serious: Yes (Other)
  Sender: FDA-Public Use
  Company Number: US-AMGEN-USASP2011021448

PATIENT
  Age: 83 Year
  Sex: Male

DRUGS (8)
  1. GLYBURIDE [Concomitant]
  2. IMMUNOGLOBULINS [Concomitant]
  3. ALLOPURINOL [Concomitant]
  4. SYNTHROID [Concomitant]
  5. LASIX [Concomitant]
  6. NPLATE [Suspect]
     Indication: IDIOPATHIC THROMBOCYTOPENIC PURPURA
     Dosage: 1 A?G/KG, UNK
     Dates: start: 20090515, end: 20101230
  7. CORTICOSTEROIDS [Concomitant]
  8. COUMADIN [Concomitant]

REACTIONS (6)
  - PROSTATOMEGALY [None]
  - COLON CANCER METASTATIC [None]
  - DIVERTICULUM INTESTINAL [None]
  - SINUS DISORDER [None]
  - THERAPEUTIC RESPONSE DECREASED [None]
  - PLEURAL EFFUSION [None]
